FAERS Safety Report 4589332-4 (Version None)
Quarter: 2005Q1

REPORT INFORMATION
  Report Type: 
  Country: None (occurrence: None)
  Receive Date: 20050216
  Receipt Date: 20050204
  Transmission Date: 20050727
  Serious: Yes (Hospitalization)
  Sender: FDA-Public Use
  Company Number: 2005AP00853

PATIENT
  Age: 88 Year
  Sex: Male

DRUGS (6)
  1. ATENOLOL [Suspect]
     Indication: ESSENTIAL HYPERTENSION
     Dosage: 50 MG DAILY PO
     Route: 048
  2. METHYLDOPA [Suspect]
     Indication: HYPOTENSION
     Dosage: 500 MG DAILY
  3. HYDROCHLOROTHIAZIDE [Suspect]
     Indication: ESSENTIAL HYPERTENSION
     Dosage: 25 MG DAILY PO
     Route: 048
  4. ASPIRIN [Concomitant]
  5. ISOSORBIDE [Concomitant]
  6. GLICLAZIDE [Concomitant]

REACTIONS (2)
  - HYPONATRAEMIA [None]
  - HYPOTENSION [None]
